FAERS Safety Report 8242880-8 (Version None)
Quarter: 2012Q1

REPORT INFORMATION
  Report Type: 
  Country: None (occurrence: None)
  Receive Date: 20120329
  Receipt Date: 20120326
  Transmission Date: 20120608
  Serious: Yes (Other)
  Sender: FDA-Public Use
  Company Number: US-PFIZER INC-2012077524

PATIENT
  Sex: Male
  Weight: 108.84 kg

DRUGS (3)
  1. OXYCODONE [Concomitant]
     Indication: PAIN
     Dosage: UNK
  2. VIAGRA [Suspect]
     Indication: ERECTILE DYSFUNCTION
     Dosage: 100 MG, AS NEEDED
     Route: 048
  3. METHOCARBAMOL [Concomitant]
     Indication: MUSCLE RELAXANT THERAPY
     Dosage: UNK

REACTIONS (2)
  - ARTHRITIS [None]
  - GAIT DISTURBANCE [None]
